FAERS Safety Report 6958459-1 (Version None)
Quarter: 2010Q3

REPORT INFORMATION
  Report Type: 
  Country: None (occurrence: None)
  Receive Date: 20100831
  Receipt Date: 20100824
  Transmission Date: 20110219
  Serious: Yes (Death)
  Sender: FDA-Public Use
  Company Number: JP-ROCHE-720101

PATIENT
  Sex: Female
  Weight: 45 kg

DRUGS (12)
  1. ACTEMRA [Suspect]
     Indication: RHEUMATOID ARTHRITIS
     Route: 041
     Dates: start: 20100730, end: 20100730
  2. PREDONINE [Concomitant]
     Dosage: GRADUAL DECREASE FROM 40MG
     Dates: start: 20100522, end: 20100809
  3. PROTECADIN [Concomitant]
     Dates: start: 20100522, end: 20100809
  4. BENET [Concomitant]
     Dates: start: 20100522, end: 20100809
  5. DEPAS [Concomitant]
     Dates: end: 20100809
  6. LOXONIN [Concomitant]
     Dosage: FORM: TAPE
     Route: 061
     Dates: start: 20100522, end: 20100809
  7. PROGRAF [Concomitant]
     Dates: start: 20100717, end: 20100809
  8. NOVORAPID [Concomitant]
     Dosage: 6-12 IU
     Dates: start: 20100728, end: 20100809
  9. NOVORAPID [Concomitant]
     Dosage: NOVORAPID MIX, DOSE: 6 IU
     Dates: start: 20100728, end: 20100809
  10. FUNGIZONE [Concomitant]
     Route: 048
     Dates: start: 20100522, end: 20100809
  11. PURSENNID [Concomitant]
     Route: 048
     Dates: start: 20100803, end: 20100809
  12. BIO-THREE [Concomitant]
     Route: 048
     Dates: start: 20100808, end: 20100809

REACTIONS (1)
  - CEREBRAL THROMBOSIS [None]
